FAERS Safety Report 8581673-9 (Version None)
Quarter: 2012Q2

REPORT INFORMATION
  Report Type: 
  Country: None (occurrence: None)
  Receive Date: 20120423
  Receipt Date: 20100714
  Transmission Date: 20120825
  Serious: Yes (Other)
  Sender: FDA-Public Use
  Company Number: PHHY2010US46599

PATIENT
  Age: 89 Year
  Sex: Female
  Weight: 52.6 kg

DRUGS (10)
  1. PRILOSEC [Concomitant]
  2. HYDRALAZINE HCL [Concomitant]
  3. CLARITIN [Concomitant]
  4. EXJADE [Suspect]
     Indication: LYMPHATIC SYSTEM NEOPLASM
     Dosage: 250 MG, TID, ORAL
     Route: 048
     Dates: start: 20100524, end: 20100707
  5. EXJADE [Suspect]
     Indication: HAEMATOPOIETIC NEOPLASM
     Dosage: 250 MG, TID, ORAL
     Route: 048
     Dates: start: 20100524, end: 20100707
  6. IMODIUM A-D [Concomitant]
  7. VIDAZA [Concomitant]
  8. TOPROL-XL [Concomitant]
  9. ALLEGRA [Concomitant]
  10. ASPIRIN [Concomitant]

REACTIONS (2)
  - GASTROINTESTINAL HAEMORRHAGE [None]
  - FAECES DISCOLOURED [None]
